FAERS Safety Report 4941413-9 (Version None)
Quarter: 2006Q1

REPORT INFORMATION
  Report Type: 
  Country: None (occurrence: None)
  Receive Date: 20060310
  Receipt Date: 20060310
  Transmission Date: 20060701
  Serious: Yes (Death, Hospitalization)
  Sender: FDA-Public Use
  Company Number: None

PATIENT
  Age: 69 Year
  Sex: Male
  Weight: 88.4514 kg

DRUGS (5)
  1. ZOCOR [Suspect]
     Indication: HYPERLIPIDAEMIA
     Dosage: 40 MG DAILY ORAL [AT LEAST 1 MONTH PRIOR TO ADMISSION]
     Route: 048
  2. DIGOXIN [Concomitant]
  3. STARLIX [Concomitant]
  4. DILTIAZEM [Concomitant]
  5. COUMADIN [Concomitant]

REACTIONS (3)
  - ASTHENIA [None]
  - PAIN IN EXTREMITY [None]
  - RHABDOMYOLYSIS [None]
